FAERS Safety Report 11709993 (Version 2)
Quarter: 2015Q4

REPORT INFORMATION
  Report Type: Spontaneous
  Country: US (occurrence: US)
  Receive Date: 20151104
  Receipt Date: 20151110
  Transmission Date: 20160304
  Serious: No
  Sender: FDA-Public Use
  Company Number: US-ELI_LILLY_AND_COMPANY-US201102007128

PATIENT
  Age: 55 Year
  Sex: Female

DRUGS (1)
  1. FORTEO [Suspect]
     Active Substance: TERIPARATIDE
     Indication: OSTEOPOROSIS
     Dosage: 20 UG, DAILY (1/D)

REACTIONS (12)
  - Nausea [Not Recovered/Not Resolved]
  - Muscle spasms [Unknown]
  - Hot flush [Unknown]
  - Initial insomnia [Recovering/Resolving]
  - Arthralgia [Not Recovered/Not Resolved]
  - Insomnia [Unknown]
  - Injection site bruising [Unknown]
  - Injection site pain [Unknown]
  - Feeling abnormal [Unknown]
  - Arthralgia [Unknown]
  - Cold sweat [Unknown]
  - Drug dose omission [Unknown]

NARRATIVE: CASE EVENT DATE: 201102
